FAERS Safety Report 5809949-6 (Version None)
Quarter: 2008Q3

REPORT INFORMATION
  Report Type: 
  Country: None (occurrence: None)
  Receive Date: 20080715
  Receipt Date: 20080711
  Transmission Date: 20090109
  Serious: Yes (Hospitalization, Other)
  Sender: FDA-Public Use
  Company Number: CA-BAYER-200816482GPV

PATIENT
  Age: 47 Year
  Sex: Male

DRUGS (4)
  1. KETOPROFEN [Suspect]
     Indication: NEURALGIA
     Route: 065
  2. PREGABALIN [Interacting]
     Indication: NEURALGIA
     Route: 065
  3. METFORMIN [Concomitant]
     Indication: DIABETES MELLITUS
  4. PERINDOPRIL ERBUMINE [Concomitant]
     Indication: DRUG USE FOR UNKNOWN INDICATION

REACTIONS (5)
  - CONVULSION [None]
  - DISTURBANCE IN ATTENTION [None]
  - FALL [None]
  - FATIGUE [None]
  - RENAL IMPAIRMENT [None]
